FAERS Safety Report 9726033 (Version 1)
Quarter: 2013Q4

REPORT INFORMATION
  Report Type: Spontaneous
  Country: US (occurrence: US)
  Receive Date: 20131203
  Receipt Date: 20131203
  Transmission Date: 20140711
  Serious: Yes (Other)
  Sender: FDA-Public Use
  Company Number: US-SA-2013SA125067

PATIENT
  Sex: Male
  Weight: 72.57 kg

DRUGS (2)
  1. PLAVIX [Suspect]
     Indication: STENT PLACEMENT
     Route: 065
  2. INSULIN [Concomitant]

REACTIONS (2)
  - Blood pressure abnormal [Unknown]
  - Coronary artery disease [Unknown]
